FAERS Safety Report 6656363-X (Version None)
Quarter: 2010Q1

REPORT INFORMATION
  Report Type: 
  Country: None (occurrence: None)
  Receive Date: 20100329
  Receipt Date: 20100323
  Transmission Date: 20100710
  Serious: Yes (Life-Threatening, Hospitalization)
  Sender: FDA-Public Use
  Company Number: FR-BRISTOL-MYERS SQUIBB COMPANY-15031909

PATIENT
  Age: 79 Year
  Sex: Female

DRUGS (16)
  1. COAPROVEL FILM-COATED TABS 300/12.5 MG [Suspect]
     Dosage: 1 DF = 1 FILM COATED TABS
     Route: 048
     Dates: end: 20100118
  2. NEXIUM [Suspect]
     Route: 048
     Dates: start: 20100213, end: 20100219
  3. PROCORALAN [Concomitant]
     Dosage: TABS
     Route: 048
  4. VASTAREL [Concomitant]
     Dosage: TABS
     Route: 048
  5. TAHOR [Concomitant]
     Dosage: TABS
     Route: 048
  6. PLAVIX [Concomitant]
     Route: 048
  7. AMLOR [Concomitant]
     Dosage: 1 DF = 5 MG 1 CAPSULE
     Route: 048
  8. CALCIUM CARBONATE [Concomitant]
     Route: 048
  9. SERETIDE [Concomitant]
  10. FLIXOTIDE [Concomitant]
  11. TRENTADIL [Concomitant]
  12. LANZOR [Concomitant]
  13. ZITHROMAX [Concomitant]
  14. DOLIPRANE [Concomitant]
  15. DIDRONEL [Concomitant]
  16. FORLAX [Concomitant]

REACTIONS (2)
  - ACUTE CORONARY SYNDROME [None]
  - HYPONATRAEMIA [None]
